FAERS Safety Report 18648772 (Version 1)
Quarter: 2020Q4

REPORT INFORMATION
  Report Type: Spontaneous
  Country: US (occurrence: US)
  Receive Date: 20201222
  Receipt Date: 20201222
  Transmission Date: 20210114
  Serious: Yes (Other)
  Sender: FDA-Public Use
  Company Number: US-BIOGEN-2020BI00959880

PATIENT

DRUGS (1)
  1. TYSABRI [Suspect]
     Active Substance: NATALIZUMAB
     Indication: MULTIPLE SCLEROSIS
     Route: 042

REACTIONS (5)
  - Type 1 diabetes mellitus [Unknown]
  - Autoimmune thyroiditis [Unknown]
  - Malaise [Unknown]
  - Multiple sclerosis [Unknown]
  - Autoimmune disorder [Unknown]
